FAERS Safety Report 20092288 (Version 1)
Quarter: 2021Q4

REPORT INFORMATION
  Report Type: Spontaneous
  Country: NL (occurrence: NL)
  Receive Date: 20211119
  Receipt Date: 20211119
  Transmission Date: 20220303
  Serious: Yes (Hospitalization)
  Sender: FDA-Public Use
  Company Number: None

PATIENT
  Age: 54 Year
  Sex: Female
  Weight: 59 kg

DRUGS (4)
  1. METHOTREXATE (METHOTREXATE SODIUM) [Suspect]
     Active Substance: METHOTREXATE SODIUM
     Indication: Systemic lupus erythematosus
     Dosage: 1X WEEKLY 7.5 MG , UNIT DOSE : 7.5 MG
     Dates: start: 202006, end: 20210602
  2. OMEPRAZOL / LOSEC MUPS [Concomitant]
     Dosage: 40 MG (MILLIGRAM) , THERAPY START DATE AND END DATE : ASKU
  3. MYCOFENOLZUUR / MYFORTIC [Concomitant]
     Dosage: 360 MG (MILLIGRAM) , THERAPY START DATE AND END DATE : ASKU
  4. SULFAMETHOXAZOLE\TRIMETHOPRIM [Concomitant]
     Active Substance: SULFAMETHOXAZOLE\TRIMETHOPRIM
     Dosage: 80/400 MG (MILLIGRAM) , THERAPY START DATE AND END DATE : ASKU , STRENGTH : 480 TABLET 80/400MG

REACTIONS (12)
  - Gastric ulcer [Recovering/Resolving]
  - Pneumonia [Recovering/Resolving]
  - Diarrhoea [Recovering/Resolving]
  - Clostridium bacteraemia [Recovering/Resolving]
  - Myositis [Recovering/Resolving]
  - Fatigue [Recovering/Resolving]
  - Arthralgia [Recovering/Resolving]
  - Pyrexia [Recovering/Resolving]
  - Chills [Recovering/Resolving]
  - Myalgia [Recovering/Resolving]
  - Malaise [Recovering/Resolving]
  - Nausea [Recovered/Resolved]

NARRATIVE: CASE EVENT DATE: 20210524
